FAERS Safety Report 5336492-3 (Version None)
Quarter: 2007Q2

REPORT INFORMATION
  Report Type: 
  Country: None (occurrence: None)
  Receive Date: 20070529
  Receipt Date: 20070518
  Transmission Date: 20071010
  Serious: Yes (Death)
  Sender: FDA-Public Use
  Company Number: AU-ELI_LILLY_AND_COMPANY-AU200705004976

PATIENT
  Age: 47 Year

DRUGS (1)
  1. ZYPREXA [Suspect]

REACTIONS (1)
  - CARDIOMYOPATHY [None]
